FAERS Safety Report 20658955 (Version 6)
Quarter: 2022Q2

REPORT INFORMATION
  Report Type: Report from Study
  Country: FR (occurrence: FR)
  Receive Date: 20220331
  Receipt Date: 20220620
  Transmission Date: 20220721
  Serious: Yes (Hospitalization, Other)
  Sender: FDA-Public Use
  Company Number: FR-GILEAD-2022-0574957

PATIENT
  Sex: Female
  Weight: 68 kg

DRUGS (8)
  1. SACITUZUMAB GOVITECAN [Suspect]
     Active Substance: SACITUZUMAB GOVITECAN
     Indication: Triple negative breast cancer
     Dosage: 10 MG/KG, (680MG VIA PORT) CYCLE 1 DAY 1
     Route: 042
     Dates: start: 20220307
  2. SACITUZUMAB GOVITECAN [Suspect]
     Active Substance: SACITUZUMAB GOVITECAN
     Dosage: 7.5 MG/KG, C2D1 AND C2D8
     Route: 042
     Dates: start: 20220411, end: 20220419
  3. ONDANSETRON [Concomitant]
     Active Substance: ONDANSETRON
     Dosage: UNK
     Dates: start: 20220307, end: 20220307
  4. APREPITANT [Concomitant]
     Active Substance: APREPITANT
     Dosage: UNK
     Dates: start: 20220307, end: 20220309
  5. METHYLPREDNISOLONE ACETATE [Concomitant]
     Active Substance: METHYLPREDNISOLONE ACETATE
     Dosage: UNK
     Dates: start: 20220307, end: 20220307
  6. ACETAMINOPHEN [Concomitant]
     Active Substance: ACETAMINOPHEN
     Dosage: UNK
     Dates: start: 20220307, end: 20220307
  7. DEXCHLORPHENIRAMINE [Concomitant]
     Active Substance: DEXCHLORPHENIRAMINE
     Dosage: UNK
     Dates: start: 20220307, end: 20220307
  8. GRANULOCYTE COLONY-STIMULATING FACTOR NOS [Concomitant]
     Active Substance: GRANULOCYTE COLONY-STIMULATING FACTOR NOS
     Dosage: PREMEDICATION AT DAY 2, DAY 3 DAY 4

REACTIONS (8)
  - Pancytopenia [Unknown]
  - Streptococcal infection [Unknown]
  - Diarrhoea [Recovering/Resolving]
  - Febrile neutropenia [Unknown]
  - Sepsis [Unknown]
  - Dehydration [Unknown]
  - Urinary tract infection [Unknown]
  - Device related infection [Unknown]

NARRATIVE: CASE EVENT DATE: 20220301
